FAERS Safety Report 9868800 (Version 1)
Quarter: 2014Q1

REPORT INFORMATION
  Report Type: Spontaneous
  Country: FR (occurrence: FR)
  Receive Date: 20140204
  Receipt Date: 20140204
  Transmission Date: 20141002
  Serious: Yes (Other)
  Sender: FDA-Public Use
  Company Number: FR-ASTRAZENECA-2014SE06589

PATIENT
  Age: 75 Year
  Sex: Female

DRUGS (3)
  1. ARIMIDEX [Suspect]
     Indication: BREAST CANCER FEMALE
     Route: 048
     Dates: start: 2011
  2. CRESTOR [Concomitant]
     Route: 048
  3. AMLOR [Concomitant]
     Indication: HYPERTENSION
     Route: 048

REACTIONS (7)
  - Hypertensive crisis [Not Recovered/Not Resolved]
  - Facial spasm [Not Recovered/Not Resolved]
  - Acne [Recovering/Resolving]
  - Diplopia [Not Recovered/Not Resolved]
  - Extraocular muscle disorder [Not Recovered/Not Resolved]
  - Dry skin [Recovering/Resolving]
  - Arthralgia [Recovering/Resolving]
